FAERS Safety Report 7213124-0 (Version None)
Quarter: 2011Q1

REPORT INFORMATION
  Report Type: 
  Country: None (occurrence: None)
  Receive Date: 20110106
  Receipt Date: 20110103
  Transmission Date: 20110831
  Serious: Yes (Other)
  Sender: FDA-Public Use
  Company Number: US-AMGEN-USASP2010002510

PATIENT

DRUGS (2)
  1. ENBREL [Suspect]
     Indication: PSORIATIC ARTHROPATHY
     Dosage: 50 MG, QWK
     Dates: start: 20080901, end: 20100804
  2. ENBREL [Suspect]
     Indication: PSORIASIS
     Dosage: UNK
     Dates: start: 20101025

REACTIONS (8)
  - BLISTER [None]
  - MUSCLE TWITCHING [None]
  - ORAL DISORDER [None]
  - SKIN EXFOLIATION [None]
  - DRY EYE [None]
  - TOOTHACHE [None]
  - LIQUID PRODUCT PHYSICAL ISSUE [None]
  - PSORIASIS [None]
